FAERS Safety Report 6354466-0 (Version None)
Quarter: 2009Q3

REPORT INFORMATION
  Report Type: 
  Country: None (occurrence: None)
  Receive Date: 20090910
  Receipt Date: 20090128
  Transmission Date: 20100115
  Serious: Yes (Other)
  Sender: FDA-Public Use
  Company Number: IND1-MX-2009-0025

PATIENT
  Age: 36 Year
  Sex: Female

DRUGS (3)
  1. INDOCIN [Suspect]
     Indication: ABORTION THREATENED
     Dosage: (1 UNITS/1X) VAGINAL
     Route: 067
     Dates: start: 20080809, end: 20080809
  2. ESTROGENS (UNSPECIFIED) (ESTROGENS [Concomitant]
  3. GENTAMICIN [Concomitant]

REACTIONS (7)
  - CAESAREAN SECTION [None]
  - DRUG EXPOSURE DURING PREGNANCY [None]
  - GASTRITIS [None]
  - INCORRECT ROUTE OF DRUG ADMINISTRATION [None]
  - OFF LABEL USE [None]
  - UMBILICAL CORD ABNORMALITY [None]
  - URINARY TRACT INFECTION [None]
